FAERS Safety Report 6883672-1 (Version None)
Quarter: 2010Q3

REPORT INFORMATION
  Report Type: 
  Country: None (occurrence: None)
  Receive Date: 20100729
  Receipt Date: 20100722
  Transmission Date: 20110219
  Serious: Yes (Hospitalization)
  Sender: FDA-Public Use
  Company Number: A0866572A

PATIENT
  Age: 55 Year
  Sex: Female

DRUGS (5)
  1. LAMICTAL [Suspect]
     Dosage: 25MG TWICE PER DAY
     Route: 048
  2. LEVOTHYROXINE SODIUM [Concomitant]
  3. PROTONIX [Concomitant]
  4. SINGULAIR [Concomitant]
  5. ZOLOFT [Concomitant]

REACTIONS (5)
  - CONTUSION [None]
  - FALL [None]
  - GAIT DISTURBANCE [None]
  - SUICIDAL IDEATION [None]
  - VISUAL IMPAIRMENT [None]
